FAERS Safety Report 6483627-5 (Version None)
Quarter: 2009Q4

REPORT INFORMATION
  Report Type: 
  Country: None (occurrence: None)
  Receive Date: 20091209
  Receipt Date: 20091127
  Transmission Date: 20100525
  Serious: Yes (Other)
  Sender: FDA-Public Use
  Company Number: PHHY2009DE52616

PATIENT
  Sex: Male

DRUGS (1)
  1. TEGRETOL RETARD [Suspect]
     Dosage: 2 X 400MG, DAILY
     Route: 048

REACTIONS (1)
  - UVEITIS [None]
